FAERS Safety Report 8578091-6 (Version None)
Quarter: 2012Q3

REPORT INFORMATION
  Report Type: 
  Country: None (occurrence: None)
  Receive Date: 20120808
  Receipt Date: 20120803
  Transmission Date: 20120928
  Serious: Yes (Other)
  Sender: FDA-Public Use
  Company Number: PHHY2010CA42486

PATIENT
  Sex: Male

DRUGS (2)
  1. ZOLEDRONOC ACID [Suspect]
     Indication: OSTEOPOROSIS
     Dosage: 5 MG/ 100 ML
     Route: 042
     Dates: start: 20100623
  2. ZOLEDRONOC ACID [Suspect]
     Dosage: 5 MG/ 100 ML
     Route: 042
     Dates: start: 20111020

REACTIONS (3)
  - DYSGEUSIA [None]
  - INFUSION RELATED REACTION [None]
  - RIB FRACTURE [None]
